FAERS Safety Report 9174263 (Version 2)
Quarter: 2013Q4

REPORT INFORMATION
  Report Type: Spontaneous
  Country: GB (occurrence: None)
  Receive Date: 20130318
  Receipt Date: 20131004
  Transmission Date: 20140711
  Serious: Yes (Death)
  Sender: FDA-Public Use
  Company Number: 1638144

PATIENT
  Age: 53 Year
  Sex: Male
  Weight: 36.29 kg

DRUGS (3)
  1. VINCRISTINE SULFATE [Suspect]
     Indication: PROSTATE CANCER METASTATIC
     Route: 042
     Dates: start: 20121102
  2. CYCLOPHOSPHAMIDE [Suspect]
     Indication: PROSTATE CANCER METASTATIC
     Route: 042
     Dates: start: 20121102
  3. DOXORUBICIN HYDROCHLORIDE [Suspect]
     Indication: PROSTATE CANCER METASTATIC
     Route: 042
     Dates: start: 20121102

REACTIONS (3)
  - Neutropenia [None]
  - Multi-organ failure [None]
  - Sepsis [None]
